FAERS Safety Report 8096937-5 (Version None)
Quarter: 2012Q1

REPORT INFORMATION
  Report Type: 
  Country: None (occurrence: None)
  Receive Date: 20120129
  Receipt Date: 20111121
  Transmission Date: 20120608
  Serious: No
  Sender: FDA-Public Use
  Company Number: US-ABBOTT-11P-163-0729848-00

PATIENT
  Sex: Female
  Weight: 93.524 kg

DRUGS (3)
  1. HUMIRA [Suspect]
     Indication: PSORIASIS
     Route: 058
     Dates: start: 20090101, end: 20101001
  2. LASARTA [Concomitant]
     Indication: HYPERTENSION
  3. CELEXA [Concomitant]
     Indication: ANXIETY

REACTIONS (10)
  - COUGH [None]
  - DYSPNOEA [None]
  - WHEEZING [None]
  - PSORIASIS [None]
  - ASTHMA [None]
  - GAIT DISTURBANCE [None]
  - SPUTUM DISCOLOURED [None]
  - NASOPHARYNGITIS [None]
  - INCREASED UPPER AIRWAY SECRETION [None]
  - PYREXIA [None]
